FAERS Safety Report 9540606 (Version 2)
Quarter: 2014Q1

REPORT INFORMATION
  Report Type: Spontaneous
  Country: US (occurrence: None)
  Receive Date: 20130524
  Receipt Date: 20130724
  Transmission Date: 20141002
  Serious: Yes (Other)
  Sender: FDA-Public Use
  Company Number: PHEH2013US004645

PATIENT
  Sex: Female
  Weight: 49.9 kg

DRUGS (2)
  1. GILENYA [Suspect]
     Indication: MULTIPLE SCLEROSIS
     Route: 048
     Dates: start: 20121218
  2. ANTIBIOTICS (NOT INGREDIENTS/SUBSTANCES) [Concomitant]

REACTIONS (2)
  - Multiple sclerosis [None]
  - Balance disorder [None]
